FAERS Safety Report 4897373-2 (Version None)
Quarter: 2006Q1

REPORT INFORMATION
  Report Type: 
  Country: None (occurrence: None)
  Receive Date: 20060130
  Receipt Date: 20060130
  Transmission Date: 20060701
  Serious: Yes (Life-Threatening, Hospitalization)
  Sender: FDA-Public Use
  Company Number: None

PATIENT
  Age: 78 Year
  Sex: Male
  Weight: 75.2 kg

DRUGS (6)
  1. DIGOXIN [Suspect]
  2. CARVEDILOL [Concomitant]
  3. FUROSEMIDE [Concomitant]
  4. AMIODARONE [Concomitant]
  5. WARFARIN SODIUM [Concomitant]
  6. FELODIPINE [Concomitant]

REACTIONS (2)
  - BRADYCARDIA [None]
  - SOMNOLENCE [None]
